FAERS Safety Report 10477787 (Version 1)
Quarter: 2014Q3

REPORT INFORMATION
  Report Type: Spontaneous
  Country: DE (occurrence: DE)
  Receive Date: 20140926
  Receipt Date: 20140926
  Transmission Date: 20150326
  Serious: Yes (Other)
  Sender: FDA-Public Use
  Company Number: DE-ASTRAZENECA-2014SE71911

PATIENT
  Sex: Female

DRUGS (1)
  1. BELOC-ZOK COMP [Suspect]
     Active Substance: HYDROCHLOROTHIAZIDE\METOPROLOL SUCCINATE
     Route: 048
     Dates: start: 1999

REACTIONS (2)
  - Pulmonary embolism [Unknown]
  - Venous thrombosis [Unknown]

NARRATIVE: CASE EVENT DATE: 2009
